FAERS Safety Report 4719986-0 (Version None)
Quarter: 2005Q3

REPORT INFORMATION
  Report Type: 
  Country: None (occurrence: None)
  Receive Date: 20050721
  Receipt Date: 20050714
  Transmission Date: 20060218
  Serious: Yes (Disabling)
  Sender: FDA-Public Use
  Company Number: 2005SE04106

PATIENT
  Age: 47 Year
  Sex: Male
  Weight: 77 kg

DRUGS (2)
  1. BLOPRESS [Suspect]
     Indication: HYPERTENSION
     Route: 048
     Dates: start: 20030407, end: 20031021
  2. BLOPRESS [Suspect]
     Route: 048
     Dates: start: 20031022, end: 20050430

REACTIONS (3)
  - ALCOHOL USE [None]
  - BREAST DISORDER MALE [None]
  - ERECTILE DYSFUNCTION [None]
